FAERS Safety Report 21377266 (Version 1)
Quarter: 2022Q3

REPORT INFORMATION
  Report Type: Spontaneous
  Country: FR (occurrence: FR)
  Receive Date: 20220926
  Receipt Date: 20220926
  Transmission Date: 20221027
  Serious: Yes (Other)
  Sender: FDA-Public Use
  Company Number: None

PATIENT
  Age: 36 Year
  Sex: Male

DRUGS (9)
  1. METRONIDAZOLE [Suspect]
     Active Substance: METRONIDAZOLE
     Indication: Infection
     Dosage: 1500 MILLIGRAMS (MG), ONCE DAILY
     Route: 042
     Dates: start: 20220806, end: 20220808
  2. TRAMADOL HYDROCHLORIDE [Suspect]
     Active Substance: TRAMADOL HYDROCHLORIDE
     Indication: Pain
     Dosage: 150 MILLIGRAM (MG), ONCE DAILY
     Route: 048
     Dates: start: 20220807, end: 20220807
  3. CEFTRIAXONE [Suspect]
     Active Substance: CEFTRIAXONE
     Indication: Exposure to communicable disease
     Dosage: 1 GRAM (G), ONCE DAILY (CEFTRIAXONE BASE)
     Route: 042
     Dates: start: 20220806, end: 20220807
  4. CEFOTAXIME [Suspect]
     Active Substance: CEFOTAXIME SODIUM
     Indication: Antibiotic therapy
     Dosage: 6 GRAMS (G), ONCE DAILY (CEFOTAXIME BASE)
     Route: 042
     Dates: start: 20220807, end: 20220808
  5. DOXYCYCLINE [Suspect]
     Active Substance: DOXYCYCLINE
     Indication: Exposure to communicable disease
     Dosage: 200 MILLIGRAMS (MG), ONCE DAILY
     Route: 048
     Dates: start: 20220805, end: 20220808
  6. ACETAMINOPHEN [Concomitant]
     Active Substance: ACETAMINOPHEN
     Indication: Pain
     Dosage: 4 GRAMS (G), ONCE DAILY
     Route: 048
  7. AUGMENTIN [Concomitant]
     Active Substance: AMOXICILLIN\CLAVULANATE POTASSIUM
     Indication: Superinfection bacterial
     Dosage: 3 GRAMS (G), ONCE DAILY
     Route: 048
     Dates: start: 20220805, end: 20220805
  8. AUGMENTIN [Concomitant]
     Active Substance: AMOXICILLIN\CLAVULANATE POTASSIUM
     Dosage: 3 GRAMS (G), ONCE DAILY
     Route: 048
     Dates: start: 20220808, end: 20220829
  9. TECOVIRIMAT MONOHYDRATE [Concomitant]
     Indication: Monkeypox
     Dosage: 1200 MILLIGRAM (MG), ONCE DAILY
     Route: 048
     Dates: start: 20220805, end: 20220819

REACTIONS (1)
  - Hepatic cytolysis [Recovered/Resolved]

NARRATIVE: CASE EVENT DATE: 20220806
